FAERS Safety Report 13641700 (Version 1)
Quarter: 2017Q2

REPORT INFORMATION
  Report Type: Spontaneous
  Country: US (occurrence: US)
  Receive Date: 20170608
  Receipt Date: 20170608
  Transmission Date: 20170830
  Serious: Yes (Other)
  Sender: FDA-Public Use
  Company Number: None

PATIENT
  Age: 26 Year
  Sex: Female
  Weight: 72 kg

DRUGS (1)
  1. MIBELAS 24 FE [Suspect]
     Active Substance: ETHINYL ESTRADIOL\NORETHINDRONE ACETATE
     Indication: CONTRACEPTION
     Dates: start: 20170517, end: 20170518

REACTIONS (2)
  - Road traffic accident [None]
  - Pregnancy on oral contraceptive [None]

NARRATIVE: CASE EVENT DATE: 20170607
